FAERS Safety Report 4658156-1 (Version None)
Quarter: 2005Q2

REPORT INFORMATION
  Report Type: 
  Country: None (occurrence: None)
  Receive Date: 20050509
  Receipt Date: 20050425
  Transmission Date: 20051028
  Serious: Yes (Hospitalization, Disabling, Other)
  Sender: FDA-Public Use
  Company Number: 2005065400

PATIENT
  Age: 40 Year
  Sex: Male
  Weight: 61.2356 kg

DRUGS (1)
  1. CELEBREX [Suspect]
     Indication: JOINT SPRAIN
     Dosage: 200 MG, ORAL
     Route: 048
     Dates: start: 20030101, end: 20030101

REACTIONS (8)
  - EXTRAVASATION [None]
  - FEELING ABNORMAL [None]
  - HEADACHE [None]
  - IMPAIRED WORK ABILITY [None]
  - MEMORY IMPAIRMENT [None]
  - PAIN IN EXTREMITY [None]
  - PROCEDURAL SITE REACTION [None]
  - VEIN DISORDER [None]
